FAERS Safety Report 24535312 (Version 3)
Quarter: 2024Q4

REPORT INFORMATION
  Report Type: Spontaneous
  Country: DE (occurrence: DE)
  Receive Date: 20241022
  Receipt Date: 20241203
  Transmission Date: 20250114
  Serious: Yes (Other)
  Sender: GILEAD
  Company Number: DE-GILEAD-2024-0691247

PATIENT
  Age: 68 Year
  Sex: Male

DRUGS (1)
  1. YESCARTA [Suspect]
     Active Substance: AXICABTAGENE CILOLEUCEL
     Indication: Diffuse large B-cell lymphoma
     Dosage: UNK
     Route: 065
     Dates: start: 20230516, end: 20230516

REACTIONS (1)
  - Nasopharyngeal cancer [Not Recovered/Not Resolved]

NARRATIVE: CASE EVENT DATE: 20241016
